FAERS Safety Report 4414406-8 (Version None)
Quarter: 2004Q3

REPORT INFORMATION
  Report Type: 
  Country: None (occurrence: None)
  Receive Date: 20040803
  Receipt Date: 20030929
  Transmission Date: 20050211
  Serious: Yes (Other)
  Sender: FDA-Public Use
  Company Number: US-MERCK-0310USA00069

PATIENT
  Age: 53 Year
  Sex: Male
  Weight: 128 kg

DRUGS (3)
  1. [THERAPY UNSPECIFIED] [Concomitant]
     Indication: BLOOD PRESSURE
     Route: 065
  2. EXTRA STRENGTH TYLENOL [Concomitant]
     Indication: PAIN
     Route: 065
     Dates: start: 19980101
  3. VIOXX [Suspect]
     Indication: PAIN
     Route: 048
     Dates: start: 19990101

REACTIONS (12)
  - ARTHROPATHY [None]
  - BLOOD CHOLESTEROL INCREASED [None]
  - CEREBROVASCULAR ACCIDENT [None]
  - CHEST PAIN [None]
  - DIZZINESS [None]
  - DYSPNOEA [None]
  - GASTRIC DISORDER [None]
  - HAEMATOCHEZIA [None]
  - HEADACHE [None]
  - HYPERTENSION [None]
  - NAUSEA [None]
  - OCULAR VASCULAR DISORDER [None]
